FAERS Safety Report 6401834-4 (Version None)
Quarter: 2009Q4

REPORT INFORMATION
  Report Type: 
  Country: None (occurrence: None)
  Receive Date: 20091013
  Receipt Date: 20091013
  Transmission Date: 20100525
  Serious: No
  Sender: FDA-Public Use
  Company Number: None

PATIENT
  Age: 67 Year
  Sex: Female
  Weight: 87.9978 kg

DRUGS (2)
  1. ESTRADERM [Suspect]
     Indication: REPRODUCTIVE TRACT DISORDER
     Dosage: APPLY 1PATCH 2XWEEK TOP
     Route: 061
     Dates: start: 20090720, end: 20090820
  2. ESTRADERM [Suspect]
     Indication: SURGERY
     Dosage: APPLY 1PATCH 2XWEEK TOP
     Route: 061
     Dates: start: 20090720, end: 20090820

REACTIONS (11)
  - ACTIVITIES OF DAILY LIVING IMPAIRED [None]
  - BLOOD OESTROGEN DECREASED [None]
  - DRUG INEFFECTIVE [None]
  - DYSURIA [None]
  - ECONOMIC PROBLEM [None]
  - HOMELESS [None]
  - MUCOSAL DISCOLOURATION [None]
  - PRODUCT ODOUR ABNORMAL [None]
  - PRODUCT OUTER PACKAGING ISSUE [None]
  - VAGINAL DISORDER [None]
  - VULVOVAGINAL DRYNESS [None]
